FAERS Safety Report 25480534 (Version 1)
Quarter: 2025Q2

REPORT INFORMATION
  Report Type: Spontaneous
  Country: GB (occurrence: GB)
  Receive Date: 20250625
  Receipt Date: 20250625
  Transmission Date: 20250717
  Serious: Yes (Disabling, Congenital Anomaly, Other)
  Sender: PURDUE
  Company Number: None

PATIENT
  Sex: Male

DRUGS (1)
  1. MORPHINE SULFATE [Suspect]
     Active Substance: MORPHINE SULFATE
     Indication: Adverse drug reaction
     Route: 065

REACTIONS (5)
  - Delayed visual maturation [Recovered/Resolved]
  - Hypermetropia [Not Recovered/Not Resolved]
  - Nystagmus [Not Recovered/Not Resolved]
  - Attention deficit hyperactivity disorder [Not Recovered/Not Resolved]
  - Visual impairment [Not Recovered/Not Resolved]

NARRATIVE: CASE EVENT DATE: 20170830
